FAERS Safety Report 8589377 (Version 2)
Quarter: 2012Q4

REPORT INFORMATION
  Report Type: 
  Country: FR (occurrence: FR)
  Receive Date: 20120531
  Receipt Date: 20120919
  Transmission Date: 20130627
  Serious: Yes (Other)
  Sender: FDA-Public Use
  Company Number: FR-ELI_LILLY_AND_COMPANY-FR201205007829

PATIENT
  Age: 60 Year
  Sex: Male
  Weight: 71 kg

DRUGS (5)
  1. ALIMTA [Suspect]
     Indication: LUNG NEOPLASM MALIGNANT
     Dosage: 500 mg/m2, unknown
     Route: 042
     Dates: start: 20120116, end: 20120410
  2. EMEND [Concomitant]
     Dosage: UNK
     Dates: start: 20120206, end: 20120410
  3. DEXAMETHASONE [Concomitant]
     Indication: PREMEDICATION
  4. SPECIAFOLDINE [Concomitant]
     Indication: PREMEDICATION
     Dosage: 0.4 mg, qd
  5. VITAMIN B12 [Concomitant]
     Indication: PREMEDICATION

REACTIONS (1)
  - Hepatocellular injury [Recovered/Resolved]
